FAERS Safety Report 17604586 (Version 1)
Quarter: 2020Q1

REPORT INFORMATION
  Report Type: Spontaneous
  Country: US (occurrence: US)
  Receive Date: 20200331
  Receipt Date: 20200331
  Transmission Date: 20200409
  Serious: No
  Sender: FDA-Public Use
  Company Number: US-PFIZER INC-2020128882

PATIENT
  Age: 34 Year
  Sex: Female

DRUGS (1)
  1. XELJANZ XR [Suspect]
     Active Substance: TOFACITINIB CITRATE
     Indication: ANKYLOSING SPONDYLITIS
     Dosage: 11 MG, DAILY
     Route: 048
     Dates: start: 20200131

REACTIONS (6)
  - Migraine [Recovered/Resolved]
  - Off label use [Unknown]
  - Pyrexia [Unknown]
  - Malaise [Unknown]
  - Product use in unapproved indication [Unknown]
  - Abdominal discomfort [Unknown]
